FAERS Safety Report 6145635-3 (Version None)
Quarter: 2009Q2

REPORT INFORMATION
  Report Type: 
  Country: None (occurrence: None)
  Receive Date: 20090407
  Receipt Date: 20090403
  Transmission Date: 20091009
  Serious: Yes (Hospitalization)
  Sender: FDA-Public Use
  Company Number: JRFBEL1999001974

PATIENT
  Sex: Female

DRUGS (1)
  1. TRISPORAL [Suspect]
     Indication: ONYCHOMYCOSIS
     Dosage: 1ST, 3RD AND 5TH WEEK
     Route: 048
     Dates: start: 19990330

REACTIONS (2)
  - GASTROENTERITIS [None]
  - PANCREATITIS ACUTE [None]
